FAERS Safety Report 8144145-1 (Version None)
Quarter: 2012Q1

REPORT INFORMATION
  Report Type: 
  Country: None (occurrence: None)
  Receive Date: 20120217
  Receipt Date: 20120214
  Transmission Date: 20120608
  Serious: Yes (Other)
  Sender: FDA-Public Use
  Company Number: GB-JNJFOC-20120206834

PATIENT
  Age: 41 Year
  Sex: Male

DRUGS (2)
  1. MINOXIDIL [Suspect]
     Route: 065
  2. MINOXIDIL [Suspect]
     Indication: PRODUCT USED FOR UNKNOWN INDICATION
     Route: 065
     Dates: start: 20120207

REACTIONS (1)
  - TINNITUS [None]
